FAERS Safety Report 15330326 (Version 4)
Quarter: 2018Q4

REPORT INFORMATION
  Report Type: Spontaneous
  Country: US (occurrence: US)
  Receive Date: 20180829
  Receipt Date: 20181129
  Transmission Date: 20190204
  Serious: Yes (Other)
  Sender: FDA-Public Use
  Company Number: US-SA-2018SA238596

PATIENT
  Age: 3 Year
  Sex: Female
  Weight: 15.2 kg

DRUGS (2)
  1. LUMIZYME [Suspect]
     Active Substance: ALGLUCOSIDASE ALFA
     Indication: GLYCOGEN STORAGE DISEASE TYPE II
     Dosage: 40 MG/KG, QW
     Route: 041
  2. EMLA [LIDOCAINE;PRILOCAINE] [Concomitant]
     Dosage: UNK UNK, UNK
     Route: 061

REACTIONS (5)
  - Device dislocation [Unknown]
  - Infusion site pain [Unknown]
  - Infusion site swelling [Recovered/Resolved]
  - Infusion site extravasation [Recovered/Resolved]
  - Device issue [Unknown]

NARRATIVE: CASE EVENT DATE: 20180822
